FAERS Safety Report 5579792-4 (Version None)
Quarter: 2008Q1

REPORT INFORMATION
  Report Type: 
  Country: None (occurrence: None)
  Receive Date: 20080102
  Receipt Date: 20071221
  Transmission Date: 20080703
  Serious: Yes (Other)
  Sender: FDA-Public Use
  Company Number: JP-PFIZER INC-2007104374

PATIENT
  Sex: Male

DRUGS (7)
  1. SULPERAZON [Suspect]
     Indication: LIVER ABSCESS
     Route: 042
     Dates: start: 20071130, end: 20071202
  2. HEPARIN SODIUM [Suspect]
     Indication: LIVER ABSCESS
     Route: 042
     Dates: start: 20071130, end: 20071202
  3. ETHINYL ESTRADIOL TAB [Concomitant]
     Route: 048
  4. CRAVIT [Concomitant]
     Route: 048
     Dates: start: 20071129, end: 20071129
  5. ENALAPRIL MALEATE [Concomitant]
     Route: 048
  6. AMLODIN [Concomitant]
     Route: 048
  7. MYSLEE [Concomitant]
     Route: 048

REACTIONS (1)
  - CHEST PAIN [None]
